FAERS Safety Report 9315646 (Version 1)
Quarter: 2013Q2

REPORT INFORMATION
  Report Type: Spontaneous
  Country: US (occurrence: US)
  Receive Date: 20130529
  Receipt Date: 20130529
  Transmission Date: 20140414
  Serious: Yes (Other)
  Sender: FDA-Public Use
  Company Number: PHHY2013US053233

PATIENT
  Sex: Male

DRUGS (1)
  1. PARACETAMOL [Suspect]

REACTIONS (1)
  - Toxicity to various agents [Unknown]
